FAERS Safety Report 24034862 (Version 1)
Quarter: 2024Q2

REPORT INFORMATION
  Report Type: Spontaneous
  Country: ZA (occurrence: None)
  Receive Date: 20240628
  Receipt Date: 20240628
  Transmission Date: 20240715
  Serious: Yes (Other)
  Sender: FDA-Public Use
  Company Number: None

PATIENT
  Sex: Female

DRUGS (1)
  1. VICKS VAPO RUB [Suspect]
     Active Substance: CAMPHOR (SYNTHETIC)\EUCALYPTUS OIL\MENTHOL
     Dates: start: 20230613, end: 20240626

REACTIONS (3)
  - Application site irritation [None]
  - Cheilitis [None]
  - Application site rash [None]

NARRATIVE: CASE EVENT DATE: 20240627
